FAERS Safety Report 10426053 (Version 1)
Quarter: 2014Q3

REPORT INFORMATION
  Report Type: Spontaneous
  Country: US (occurrence: US)
  Receive Date: 20140903
  Receipt Date: 20140903
  Transmission Date: 20150326
  Serious: No
  Sender: FDA-Public Use
  Company Number: US-BIOGENIDEC-2014BI087982

PATIENT
  Age: 42 Year

DRUGS (5)
  1. PREDNISONE TAPER [Concomitant]
     Active Substance: PREDNISONE
     Route: 048
     Dates: start: 20140722, end: 20140729
  2. MEDROL DOSE PACK [Concomitant]
     Active Substance: METHYLPREDNISOLONE
     Dates: start: 20140630
  3. SILVER SULFADENE (NOS) [Concomitant]
  4. GABAPENTIN. [Concomitant]
     Active Substance: GABAPENTIN
  5. TECFIDERA [Suspect]
     Active Substance: DIMETHYL FUMARATE
     Indication: MULTIPLE SCLEROSIS
     Dates: start: 2013

REACTIONS (3)
  - Back pain [Unknown]
  - Rash macular [Unknown]
  - Herpes zoster [Unknown]

NARRATIVE: CASE EVENT DATE: 20140812
